FAERS Safety Report 7572983-2 (Version None)
Quarter: 2011Q2

REPORT INFORMATION
  Report Type: 
  Country: None (occurrence: None)
  Receive Date: 20110620
  Receipt Date: 20110606
  Transmission Date: 20111010
  Serious: Yes (Other)
  Sender: FDA-Public Use
  Company Number: 2011MA007061

PATIENT
  Age: 30 Year
  Sex: Female

DRUGS (3)
  1. IRBESARTAN [Concomitant]
  2. FUROSEMIDE [Concomitant]
  3. DOXAZOSIN MESYLATE [Suspect]
     Indication: HYPERTENSION
     Dosage: 4 MG; ;PO
     Route: 048
     Dates: start: 20110420, end: 20110519

REACTIONS (3)
  - DERMATITIS BULLOUS [None]
  - DRUG ERUPTION [None]
  - BLISTER [None]
